FAERS Safety Report 7589479-4 (Version None)
Quarter: 2011Q2

REPORT INFORMATION
  Report Type: 
  Country: None (occurrence: None)
  Receive Date: 20110627
  Receipt Date: 20110609
  Transmission Date: 20111010
  Serious: Yes (Hospitalization)
  Sender: FDA-Public Use
  Company Number: PHHY2011CH51133

PATIENT
  Age: 59 Year
  Sex: Female
  Weight: 50 kg

DRUGS (8)
  1. CIPROFLOXACIN [Concomitant]
  2. VALIUM [Concomitant]
  3. LYRICA [Concomitant]
  4. PANTOPRAZOLE SODIUM [Concomitant]
  5. TRANSIPEG (MACROGOL) [Concomitant]
  6. CALCIUM SANDOZ (CALCIUM CARBONATE, CALCIUM GLUBIONAT, CALCIUM GLUCONAT [Concomitant]
  7. SIRDALUD (TIZANIDINE HYDROCHLORIDE) UNKNOWN [Suspect]
     Dosage: 3 MG 1 MG
  8. MAGNESIOCARD (MAGNESIUM ASPARTATE HYDROCHLORIDE) [Concomitant]

REACTIONS (7)
  - SEDATION [None]
  - CONVULSION [None]
  - COMA [None]
  - STIFF-MAN SYNDROME [None]
  - HYPOTENSION [None]
  - HYPERVENTILATION [None]
  - FALL [None]
